FAERS Safety Report 10189104 (Version 1)
Quarter: 2014Q2

REPORT INFORMATION
  Report Type: Spontaneous
  Country: FR (occurrence: FR)
  Receive Date: 20140522
  Receipt Date: 20140522
  Transmission Date: 20141212
  Serious: Yes (Hospitalization)
  Sender: FDA-Public Use
  Company Number: FR-TEVA-482418ISR

PATIENT
  Age: 62 Year
  Sex: Female

DRUGS (9)
  1. ACIDE FOLINIQUE TEVA [Suspect]
     Indication: ADENOCARCINOMA OF COLON
     Dosage: 3 COURSES
     Route: 042
     Dates: start: 20090122, end: 20090228
  2. OXALIPLATINE MYLAN [Suspect]
     Indication: ADENOCARCINOMA OF COLON
     Dosage: 3 COURSES
     Route: 042
     Dates: start: 20090122, end: 20090228
  3. FLUOROURACILE SANDOZ [Suspect]
     Indication: ADENOCARCINOMA OF COLON
     Dosage: 3 COURSES
     Route: 042
     Dates: start: 20090122, end: 20090228
  4. PREVISCAN [Concomitant]
  5. SOTALOL 160MG [Concomitant]
  6. AMLODIPINE [Concomitant]
  7. FORTZAAR 100MG/25MG [Concomitant]
  8. LEVOTHYROX 75 MICROGRAMS [Concomitant]
  9. GROWTH FACTOR [Concomitant]

REACTIONS (12)
  - Febrile bone marrow aplasia [Recovered/Resolved]
  - Device issue [Unknown]
  - Erythema [Unknown]
  - Dyspepsia [Unknown]
  - Diarrhoea [Unknown]
  - Dehydration [Unknown]
  - Renal failure chronic [Unknown]
  - Renal tubular necrosis [Unknown]
  - Vomiting [Unknown]
  - Asthenia [Unknown]
  - Skin necrosis [Unknown]
  - Debridement [Unknown]
